FAERS Safety Report 13499928 (Version 1)
Quarter: 2017Q2

REPORT INFORMATION
  Report Type: Spontaneous
  Country: US (occurrence: US)
  Receive Date: 20170421
  Receipt Date: 20170421
  Transmission Date: 20170830
  Serious: No
  Sender: FDA-Public Use
  Company Number: US-THROMBOGENICS NV-SPO-2017-2349

PATIENT
  Sex: Female

DRUGS (1)
  1. JETREA [Suspect]
     Active Substance: OCRIPLASMIN
     Indication: VITREOUS ADHESIONS
     Dosage: 0.125 MG, ONE TIME DOSE
     Route: 031
     Dates: start: 20170130, end: 20170130

REACTIONS (3)
  - Visual impairment [Unknown]
  - Dyschromatopsia [Not Recovered/Not Resolved]
  - Photopsia [Unknown]
